FAERS Safety Report 9222534 (Version 1)
Quarter: 2013Q2

REPORT INFORMATION
  Report Type: Report from Study
  Country: US (occurrence: US)
  Receive Date: 20130410
  Receipt Date: 20130410
  Transmission Date: 20140414
  Serious: Yes (Hospitalization, Other)
  Sender: FDA-Public Use
  Company Number: US-ACTELION-A-NJ2012-68840

PATIENT
  Age: 19 Year
  Sex: Female
  Weight: 67.5 kg

DRUGS (10)
  1. VENTAVIS [Suspect]
     Indication: PULMONARY ARTERIAL HYPERTENSION
     Dosage: 2.5 UG, UNK 6X DAILY
     Route: 055
     Dates: start: 20120514, end: 20120711
  2. LETAIRIS [Concomitant]
     Dosage: 10 MG, OD
     Route: 048
     Dates: start: 20120324, end: 20120711
  3. ADCIRCA [Concomitant]
     Dosage: UNK
     Dates: start: 20120322
  4. ALBUTEROL [Concomitant]
     Dosage: UNK
     Dates: start: 20120124
  5. FLOVENT [Concomitant]
     Dosage: UNK
     Dates: start: 20120124
  6. TYVASO [Concomitant]
     Route: 055
  7. ACETAMINOPHEN [Concomitant]
     Dosage: 500 MG, PRN
  8. CHOLECALCIFEROL [Concomitant]
     Dosage: 5000 U, UNK
  9. ENOXAPARIN [Concomitant]
     Dosage: 40 MG, UNK
  10. PITOCIN [Concomitant]

REACTIONS (8)
  - Endometritis [Unknown]
  - Amniotic cavity infection [Unknown]
  - Sickle cell anaemia [Unknown]
  - Disease complication [Unknown]
  - Transfusion [Unknown]
  - Premature baby [Unknown]
  - Pregnancy [Unknown]
  - Gestational diabetes [Unknown]
